FAERS Safety Report 21404873 (Version 1)
Quarter: 2022Q3

REPORT INFORMATION
  Report Type: Spontaneous
  Country: US (occurrence: None)
  Receive Date: 20220930
  Receipt Date: 20220930
  Transmission Date: 20221027
  Serious: Yes (Hospitalization)
  Sender: FDA-Public Use
  Company Number: None

PATIENT
  Age: 38 Year
  Sex: Male
  Weight: 86 kg

DRUGS (1)
  1. TICAGRELOR [Suspect]
     Active Substance: TICAGRELOR
     Indication: Coronary arterial stent insertion
     Dosage: 90 MB BID PO
     Route: 048
     Dates: start: 20220115, end: 20220423

REACTIONS (4)
  - Pharyngeal swelling [None]
  - Oropharyngeal discomfort [None]
  - Dyspnoea [None]
  - Angioedema [None]

NARRATIVE: CASE EVENT DATE: 20220423
